FAERS Safety Report 8812261 (Version 1)
Quarter: 2012Q4

REPORT INFORMATION
  Report Type: 
  Country: US (occurrence: US)
  Receive Date: 20120927
  Receipt Date: 20120927
  Transmission Date: 20130627
  Serious: Yes (Other)
  Sender: FDA-Public Use
  Company Number: US-ROCHE-1124398

PATIENT
  Sex: Female

DRUGS (8)
  1. AVASTIN [Suspect]
     Indication: BREAST CANCER FEMALE
     Route: 065
     Dates: start: 20051019
  2. HERCEPTIN [Suspect]
     Indication: PRODUCT USED FOR UNKNOWN INDICATION
     Route: 065
     Dates: start: 200505
  3. TAXOL [Concomitant]
  4. ADRIAMYCIN [Concomitant]
  5. CYCLOPHOSPHAMIDE [Concomitant]
  6. GEMZAR [Concomitant]
  7. CARBOPLATIN [Concomitant]
  8. ABRAXANE [Concomitant]
     Route: 065
     Dates: start: 20051212

REACTIONS (6)
  - Liver disorder [Unknown]
  - Metastases to liver [Unknown]
  - Metastases to bone [Unknown]
  - Pleural disorder [Unknown]
  - Bone pain [Recovered/Resolved]
  - Metastases to chest wall [Unknown]
